FAERS Safety Report 7458328-7 (Version None)
Quarter: 2011Q2

REPORT INFORMATION
  Report Type: 
  Country: None (occurrence: None)
  Receive Date: 20110504
  Receipt Date: 20110420
  Transmission Date: 20111010
  Serious: Yes (Other)
  Sender: FDA-Public Use
  Company Number: JP-JNJFOC-20101204217

PATIENT
  Age: 40 Year
  Sex: Female
  Weight: 90 kg

DRUGS (8)
  1. HYDROCORTISONE SODIUM PHOSPHATE [Concomitant]
  2. HUMIRA [Concomitant]
     Indication: ANKYLOSING SPONDYLITIS
     Route: 058
  3. REMICADE [Suspect]
     Indication: ANKYLOSING SPONDYLITIS
     Route: 042
  4. REMICADE [Suspect]
     Route: 042
  5. VOLTAREN [Concomitant]
     Indication: ANKYLOSING SPONDYLITIS
     Route: 048
  6. RHEUMATREX [Concomitant]
     Indication: ANKYLOSING SPONDYLITIS
     Route: 048
  7. REMICADE [Suspect]
     Route: 042
  8. ISONIAZID [Concomitant]
     Indication: ANTIBIOTIC PROPHYLAXIS
     Route: 048

REACTIONS (6)
  - INFUSION RELATED REACTION [None]
  - WHEEZING [None]
  - OCULAR HYPERAEMIA [None]
  - PYREXIA [None]
  - URTICARIA [None]
  - BLOOD PRESSURE INCREASED [None]
